FAERS Safety Report 6976681-5 (Version None)
Quarter: 2010Q3

REPORT INFORMATION
  Report Type: 
  Country: None (occurrence: None)
  Receive Date: 20100910
  Receipt Date: 20100902
  Transmission Date: 20110219
  Serious: Yes (Life-Threatening, Hospitalization)
  Sender: FDA-Public Use
  Company Number: IN-SANOFI-AVENTIS-2010SA052850

PATIENT
  Sex: Female

DRUGS (4)
  1. LANTUS [Suspect]
     Indication: DIABETES MELLITUS
     Dosage: 110-120 UNITS/DAY
     Dates: start: 20100702, end: 20100706
  2. LANTUS [Suspect]
     Dosage: 20-25 UNITS/DAY
  3. APIDRA [Suspect]
     Dosage: DOSE:20 UNIT(S)
  4. ANTIBIOTICS [Concomitant]
     Indication: SURGERY

REACTIONS (1)
  - OVARIAN CYST [None]
